FAERS Safety Report 6628099-2 (Version None)
Quarter: 2010Q1

REPORT INFORMATION
  Report Type: 
  Country: None (occurrence: None)
  Receive Date: 20100311
  Receipt Date: 20090918
  Transmission Date: 20100710
  Serious: No
  Sender: FDA-Public Use
  Company Number: A0808050A

PATIENT
  Age: 62 Year
  Sex: Female

DRUGS (2)
  1. NICORETTE [Suspect]
  2. CLARITIN [Concomitant]

REACTIONS (7)
  - ASTHENIA [None]
  - COUGH [None]
  - DIARRHOEA [None]
  - HYPERSENSITIVITY [None]
  - INTENTIONAL DRUG MISUSE [None]
  - MUSCLE SPASMS [None]
  - RHINORRHOEA [None]
